FAERS Safety Report 9603835 (Version 1)
Quarter: 2013Q4

REPORT INFORMATION
  Report Type: Spontaneous
  Country: JP (occurrence: JP)
  Receive Date: 20131008
  Receipt Date: 20131008
  Transmission Date: 20140711
  Serious: Yes (Other)
  Sender: FDA-Public Use
  Company Number: JP-ROCHE-1283476

PATIENT
  Age: 70 Year
  Sex: Male

DRUGS (6)
  1. AVASTIN [Suspect]
     Indication: COLON CANCER
     Dosage: THE SECOND COURSE
     Route: 041
     Dates: start: 2013, end: 2013
  2. AVASTIN [Suspect]
     Indication: COLON CANCER
     Dosage: THE FOURTH COURSE
     Route: 041
     Dates: start: 2013, end: 2013
  3. ELPLAT [Concomitant]
     Indication: COLON CANCER
     Dosage: FOUR COURSES
     Route: 041
     Dates: start: 2013
  4. 5-FU [Concomitant]
     Indication: COLON CANCER
     Dosage: FOUR COURSES
     Route: 041
     Dates: start: 2013
  5. 5-FU [Concomitant]
     Indication: COLON CANCER
     Dosage: FOUR COURSES
     Route: 040
     Dates: start: 2013
  6. CALCIUM LEVOFOLINATE [Concomitant]
     Indication: COLON CANCER
     Dosage: FOUR COURSES
     Route: 041

REACTIONS (1)
  - Metastases to liver [Unknown]
